FAERS Safety Report 14816262 (Version 3)
Quarter: 2018Q2

REPORT INFORMATION
  Report Type: Spontaneous
  Country: JP (occurrence: JP)
  Receive Date: 20180426
  Receipt Date: 20180510
  Transmission Date: 20180711
  Serious: Yes (Other)
  Sender: FDA-Public Use
  Company Number: PHJP2018JP009406

PATIENT
  Sex: Male

DRUGS (15)
  1. SYMMETREL [Suspect]
     Active Substance: AMANTADINE HYDROCHLORIDE
     Indication: PARKINSON^S DISEASE
     Dosage: 50 MG, QD AFTER BREAKFAST
     Route: 048
  2. DOPACOL [Concomitant]
     Active Substance: CARBIDOPA\LEVODOPA
     Indication: PRODUCT USED FOR UNKNOWN INDICATION
     Dosage: 3 TIMES A DAY (50MG-50MG-25MG)
     Route: 048
  3. REQUIP [Concomitant]
     Active Substance: ROPINIROLE HYDROCHLORIDE
     Dosage: 8 MG, UNK
     Route: 048
  4. NEUPRO [Concomitant]
     Active Substance: ROTIGOTINE
     Indication: PRODUCT USED FOR UNKNOWN INDICATION
     Dosage: 4.5 MG, QD
     Route: 062
  5. NEUPRO [Concomitant]
     Active Substance: ROTIGOTINE
     Dosage: 9 MG, UNK
     Route: 062
  6. NOURIAST [Concomitant]
     Active Substance: ISTRADEFYLLINE
     Indication: PRODUCT USED FOR UNKNOWN INDICATION
     Dosage: 20 MG, QD AFTER BREAKFAST
     Route: 048
  7. AROTINOLOL HYDROCHLORIDE [Concomitant]
     Active Substance: AROTINOLOL HYDROCHLORIDE
     Indication: PRODUCT USED FOR UNKNOWN INDICATION
     Dosage: 10 MG, QD (1 TABLET AFTER BREAKFAST)
     Route: 048
  8. COMTAN [Suspect]
     Active Substance: ENTACAPONE
     Indication: PARKINSON^S DISEASE
     Dosage: 1 DF, BID
     Route: 048
  9. REQUIP [Concomitant]
     Active Substance: ROPINIROLE HYDROCHLORIDE
     Indication: PRODUCT USED FOR UNKNOWN INDICATION
     Dosage: 10 MG, QD AFTER BREAKFAST
     Route: 048
  10. REQUIP [Concomitant]
     Active Substance: ROPINIROLE HYDROCHLORIDE
     Dosage: 2 MG, QD
     Route: 048
  11. FP-OD [Concomitant]
     Active Substance: SELEGILINE HYDROCHLORIDE
     Indication: PRODUCT USED FOR UNKNOWN INDICATION
     Dosage: 2 TIMES A DAY (5MG-2.5MG-0)
     Route: 048
  12. EXCEGRAN [Concomitant]
     Active Substance: ZONISAMIDE
     Indication: PRODUCT USED FOR UNKNOWN INDICATION
     Dosage: 100 MG, QD (1 TABLET BEFORE BEDTIME)
     Route: 048
  13. MENESIT [Concomitant]
     Active Substance: CARBIDOPA\LEVODOPA
     Indication: PRODUCT USED FOR UNKNOWN INDICATION
     Dosage: 1 DF, TID (3 TABLETS DIVIDED IN 3 DOSES, AFTER EVERY MEAL)
     Route: 048
  14. REQUIP [Concomitant]
     Active Substance: ROPINIROLE HYDROCHLORIDE
     Dosage: 4-6 MG, UNK
     Route: 048
  15. NEUPRO [Concomitant]
     Active Substance: ROTIGOTINE
     Dosage: 13.5 MG, UNK
     Route: 062

REACTIONS (10)
  - Posture abnormal [Unknown]
  - Sudden onset of sleep [Unknown]
  - Therapeutic response shortened [Unknown]
  - Freezing phenomenon [Unknown]
  - Tremor [Unknown]
  - Parkinson^s disease [Unknown]
  - Limb discomfort [Unknown]
  - Sensory disturbance [Unknown]
  - Sleep disorder [Unknown]
  - Poor quality sleep [Unknown]
